FAERS Safety Report 7596359-7 (Version None)
Quarter: 2011Q3

REPORT INFORMATION
  Report Type: 
  Country: None (occurrence: None)
  Receive Date: 20110707
  Receipt Date: 20110626
  Transmission Date: 20111222
  Serious: Yes (Hospitalization)
  Sender: FDA-Public Use
  Company Number: CN-BAXTER-2011BH021409

PATIENT
  Age: 36 Year
  Sex: Male
  Weight: 65 kg

DRUGS (3)
  1. DIANEAL [Suspect]
     Indication: RENAL FAILURE CHRONIC
     Route: 033
     Dates: start: 20110620, end: 20110622
  2. DIANEAL [Suspect]
     Route: 033
     Dates: start: 20110622
  3. PERITONEAL DIALYSIS SOLUTION [Suspect]
     Indication: RENAL FAILURE CHRONIC
     Route: 033
     Dates: start: 20110622, end: 20110622

REACTIONS (2)
  - PYREXIA [None]
  - INFECTIOUS PERITONITIS [None]
